FAERS Safety Report 24874893 (Version 1)
Quarter: 2025Q1

REPORT INFORMATION
  Report Type: Spontaneous
  Country: GB (occurrence: GB)
  Receive Date: 20250122
  Receipt Date: 20250122
  Transmission Date: 20250408
  Serious: Yes (Other)
  Sender: MYLAN
  Company Number: GB-MHRA-TPP6281947C22275880YC1737030718695

PATIENT
  Age: 19 Year
  Sex: Female
  Weight: 78 kg

DRUGS (4)
  1. VENLAFAXINE [Suspect]
     Active Substance: VENLAFAXINE HYDROCHLORIDE
     Indication: Ill-defined disorder
     Dosage: 75 MILLIGRAM, QD (AT NIGHT - FOLLOW UP AFTER 2 WEEKS)
     Route: 065
     Dates: start: 20241111
  2. FLUOXETINE [Concomitant]
     Active Substance: FLUOXETINE HYDROCHLORIDE
     Indication: Ill-defined disorder
     Dosage: 1 DOSAGE FORM, QD
     Route: 065
     Dates: start: 20240910, end: 20241112
  3. ETHINYL ESTRADIOL\LEVONORGESTREL [Concomitant]
     Active Substance: ETHINYL ESTRADIOL\LEVONORGESTREL
     Indication: Ill-defined disorder
     Route: 065
     Dates: start: 20240909
  4. PROMETHAZINE HYDROCHLORIDE [Concomitant]
     Active Substance: PROMETHAZINE HYDROCHLORIDE
     Indication: Ill-defined disorder
     Dosage: UNK, QD (1-2 AT NIGHT - SHORT TERM USE ONLY)
     Route: 065
     Dates: start: 20240910

REACTIONS (3)
  - Headache [Recovering/Resolving]
  - Abdominal pain [Recovering/Resolving]
  - Aggression [Recovering/Resolving]

NARRATIVE: CASE EVENT DATE: 20250116
